FAERS Safety Report 18161777 (Version 1)
Quarter: 2020Q3

REPORT INFORMATION
  Report Type: Spontaneous
  Country: US (occurrence: US)
  Receive Date: 20200817
  Receipt Date: 20200817
  Transmission Date: 20201103
  Serious: Yes (Life-Threatening, Hospitalization)
  Sender: FDA-Public Use
  Company Number: None

PATIENT
  Age: 61 Year
  Sex: Female
  Weight: 103.5 kg

DRUGS (21)
  1. POTASSIUM K TAB [Concomitant]
  2. VITAMIN B12 [Concomitant]
     Active Substance: CYANOCOBALAMIN
  3. ATENOLOL. [Concomitant]
     Active Substance: ATENOLOL
  4. ZINC. [Concomitant]
     Active Substance: ZINC
  5. METHOTREXATE. [Suspect]
     Active Substance: METHOTREXATE
     Indication: RHEUMATOID ARTHRITIS
     Dosage: ?          QUANTITY:10 TABLET(S);OTHER FREQUENCY:ONCE A WEEK;?
     Route: 048
     Dates: start: 20110601, end: 20170810
  6. NORCO [Concomitant]
     Active Substance: ACETAMINOPHEN\HYDROCODONE BITARTRATE
  7. PROTONIX [Concomitant]
     Active Substance: PANTOPRAZOLE SODIUM
  8. VENTOLIN [Concomitant]
     Active Substance: ALBUTEROL SULFATE
  9. FOLIC ACID. [Concomitant]
     Active Substance: FOLIC ACID
  10. TURMERIC [Concomitant]
     Active Substance: HERBALS\TURMERIC
  11. BIOTIN [Concomitant]
     Active Substance: BIOTIN
  12. GABAPENTIN. [Concomitant]
     Active Substance: GABAPENTIN
  13. PREDNISON [Concomitant]
     Active Substance: PREDNISONE
  14. VITAMIN D3 [Concomitant]
     Active Substance: CHOLECALCIFEROL
  15. LEVOTHYROXINE. [Concomitant]
     Active Substance: LEVOTHYROXINE
  16. LEFLUNOMIDE. [Concomitant]
     Active Substance: LEFLUNOMIDE
  17. DULOXETIN [Concomitant]
     Active Substance: DULOXETINE
  18. FUROSEMIDE. [Concomitant]
     Active Substance: FUROSEMIDE
  19. HYDRAZINE [Concomitant]
     Active Substance: HYDRAZINE SULFATE
  20. PLAQUENIL [Concomitant]
     Active Substance: HYDROXYCHLOROQUINE SULFATE
  21. PROBIOTICS [Concomitant]
     Active Substance: PROBIOTICS NOS

REACTIONS (13)
  - Oral discomfort [None]
  - Fatigue [None]
  - Dialysis [None]
  - Oropharyngeal pain [None]
  - Dehydration [None]
  - Abdominal discomfort [None]
  - Dysphagia [None]
  - Alopecia [None]
  - Loss of personal independence in daily activities [None]
  - Oesophageal disorder [None]
  - Renal failure [None]
  - Ear pain [None]
  - Eating disorder [None]

NARRATIVE: CASE EVENT DATE: 20170820
